FAERS Safety Report 11402145 (Version 1)
Quarter: 2015Q3

REPORT INFORMATION
  Report Type: Spontaneous
  Country: US (occurrence: None)
  Receive Date: 20150807
  Receipt Date: 20150807
  Transmission Date: 20151125
  Serious: Yes (Other)
  Sender: FDA-Public Use
  Company Number: 2015-LIT-ME-0039

PATIENT
  Age: 76 Year
  Sex: Female

DRUGS (2)
  1. METHOTREXATE (METHOTREXATE) N/A 17.5MG [Suspect]
     Active Substance: METHOTREXATE
     Indication: RHEUMATOID ARTHRITIS
  2. REMICADE [Concomitant]
     Active Substance: INFLIXIMAB

REACTIONS (6)
  - VIIth nerve paralysis [None]
  - Cerebral toxoplasmosis [None]
  - Aphasia [None]
  - Dysarthria [None]
  - Asthenia [None]
  - Memory impairment [None]
